FAERS Safety Report 19709157 (Version 10)
Quarter: 2022Q4

REPORT INFORMATION
  Report Type: Spontaneous
  Country: FR (occurrence: FR)
  Receive Date: 20210817
  Receipt Date: 20221222
  Transmission Date: 20230113
  Serious: Yes (Hospitalization, Disabling, Other)
  Sender: FDA-Public Use
  Company Number: FR-THERAMEX-2021000843

PATIENT
  Age: 37 Year
  Sex: Female
  Weight: 61 kg

DRUGS (127)
  1. VENLAFAXINE HCL [Suspect]
     Active Substance: VENLAFAXINE HYDROCHLORIDE
     Indication: Headache
     Dosage: UNK
     Route: 065
  2. MEDROL [Suspect]
     Active Substance: METHYLPREDNISOLONE
     Dosage: 4 MG
     Route: 048
     Dates: start: 201602
  3. MEDROL [Suspect]
     Active Substance: METHYLPREDNISOLONE
     Dosage: UNK
     Route: 065
  4. MEDROL [Suspect]
     Active Substance: METHYLPREDNISOLONE
     Dosage: UNK
     Route: 065
  5. ALMOTRIPTAN MALATE [Suspect]
     Active Substance: ALMOTRIPTAN MALATE
     Indication: Headache
     Dosage: UNK
     Route: 065
  6. ALMOTRIPTAN MALATE [Suspect]
     Active Substance: ALMOTRIPTAN MALATE
     Dosage: UNK
     Route: 065
  7. ALMOTRIPTAN MALATE [Suspect]
     Active Substance: ALMOTRIPTAN MALATE
     Dosage: UNK
     Route: 065
  8. ALMOTRIPTAN MALATE [Suspect]
     Active Substance: ALMOTRIPTAN MALATE
     Dosage: UNK
     Route: 065
  9. CYPROTERONE ACETATE [Suspect]
     Active Substance: CYPROTERONE ACETATE
     Indication: Hirsutism
     Dosage: 1 G, 1X/DAY
     Route: 048
     Dates: start: 20110506, end: 201506
  10. CYPROTERONE ACETATE [Suspect]
     Active Substance: CYPROTERONE ACETATE
     Indication: Oral contraception
     Dosage: 50 MG, DAILY
     Route: 048
     Dates: start: 201105, end: 201506
  11. CYPROTERONE ACETATE [Suspect]
     Active Substance: CYPROTERONE ACETATE
     Dosage: UNK
     Dates: start: 20111107
  12. CYPROTERONE ACETATE [Suspect]
     Active Substance: CYPROTERONE ACETATE
     Dosage: UNK
     Dates: start: 20120406
  13. CYPROTERONE ACETATE [Suspect]
     Active Substance: CYPROTERONE ACETATE
     Dosage: UNK
     Dates: start: 20121113
  14. CYPROTERONE ACETATE [Suspect]
     Active Substance: CYPROTERONE ACETATE
     Dosage: UNK
     Dates: start: 20130514
  15. CYPROTERONE ACETATE [Suspect]
     Active Substance: CYPROTERONE ACETATE
     Dosage: UNK
     Dates: start: 20131127
  16. CYPROTERONE ACETATE [Suspect]
     Active Substance: CYPROTERONE ACETATE
     Dosage: UNK
     Dates: start: 20150115
  17. CYPROTERONE ACETATE [Suspect]
     Active Substance: CYPROTERONE ACETATE
     Dosage: 500 MG
     Dates: start: 201505
  18. CYPROTERONE ACETATE [Suspect]
     Active Substance: CYPROTERONE ACETATE
     Dosage: 1 G
     Dates: start: 20150617
  19. CYPROTERONE ACETATE [Suspect]
     Active Substance: CYPROTERONE ACETATE
     Dosage: UNK
     Dates: start: 20150717
  20. CYPROTERONE ACETATE [Suspect]
     Active Substance: CYPROTERONE ACETATE
     Dosage: UNK
     Dates: start: 20170323
  21. CYPROTERONE ACETATE [Suspect]
     Active Substance: CYPROTERONE ACETATE
     Dosage: UNK (DR. SAW THE PATIENT ON JULY 17, 2015,)
     Route: 065
     Dates: start: 20170717
  22. PROPRANOLOL HYDROCHLORIDE [Suspect]
     Active Substance: PROPRANOLOL HYDROCHLORIDE
     Indication: Headache
     Dosage: UNK
     Dates: start: 199703
  23. PROPRANOLOL HYDROCHLORIDE [Suspect]
     Active Substance: PROPRANOLOL HYDROCHLORIDE
     Dosage: 1.5 DF
     Route: 065
     Dates: start: 20001128
  24. INDOMETHACIN [Suspect]
     Active Substance: INDOMETHACIN
     Indication: Headache
     Dosage: UNK
     Route: 065
  25. INDOMETHACIN [Suspect]
     Active Substance: INDOMETHACIN
     Dosage: UNK
     Route: 065
  26. INDOMETHACIN [Suspect]
     Active Substance: INDOMETHACIN
     Dosage: UNK
     Route: 065
  27. DIANE (CYPROTERONE ACETATE\ETHINYL ESTRADIOL) [Suspect]
     Active Substance: CYPROTERONE ACETATE\ETHINYL ESTRADIOL
     Indication: Haemorrhage
     Dosage: UNK
     Route: 065
     Dates: start: 1999, end: 2001
  28. DIANE (CYPROTERONE ACETATE\ETHINYL ESTRADIOL) [Suspect]
     Active Substance: CYPROTERONE ACETATE\ETHINYL ESTRADIOL
     Indication: Migraine
     Dosage: UNK (LAST PRESCRIPTION)
     Route: 065
     Dates: start: 20001128
  29. DIANE (CYPROTERONE ACETATE\ETHINYL ESTRADIOL) [Suspect]
     Active Substance: CYPROTERONE ACETATE\ETHINYL ESTRADIOL
     Dosage: UNK
     Route: 065
     Dates: start: 20011105
  30. DIANE (CYPROTERONE ACETATE\ETHINYL ESTRADIOL) [Suspect]
     Active Substance: CYPROTERONE ACETATE\ETHINYL ESTRADIOL
     Dosage: 2 MILLIGRAM, QD (2MG DAILY, 21D/MONTH)
     Route: 065
     Dates: start: 199905, end: 200011
  31. DIANE (CYPROTERONE ACETATE\ETHINYL ESTRADIOL) [Suspect]
     Active Substance: CYPROTERONE ACETATE\ETHINYL ESTRADIOL
     Dosage: UNK, NOVEMBER 2001 TO NOVEMBER 2002: NEW PRESCRIPT
     Route: 065
     Dates: start: 200111, end: 200111
  32. DIANE (CYPROTERONE ACETATE\ETHINYL ESTRADIOL) [Suspect]
     Active Substance: CYPROTERONE ACETATE\ETHINYL ESTRADIOL
     Dosage: UNK
     Route: 065
  33. KEPPRA [Suspect]
     Active Substance: LEVETIRACETAM
     Dosage: UNK
     Route: 065
  34. AMITRIPTYLINE HYDROCHLORIDE [Suspect]
     Active Substance: AMITRIPTYLINE HYDROCHLORIDE
     Indication: Headache
     Dosage: UNK
     Route: 065
  35. AMITRIPTYLINE HYDROCHLORIDE [Suspect]
     Active Substance: AMITRIPTYLINE HYDROCHLORIDE
     Dosage: UNK
     Route: 065
  36. AMITRIPTYLINE HYDROCHLORIDE [Suspect]
     Active Substance: AMITRIPTYLINE HYDROCHLORIDE
     Dosage: UNK
     Route: 065
  37. AMITRIPTYLINE HYDROCHLORIDE [Suspect]
     Active Substance: AMITRIPTYLINE HYDROCHLORIDE
     Dosage: UNK
     Route: 065
  38. BROMAZEPAM [Suspect]
     Active Substance: BROMAZEPAM
     Dosage: UNK
     Route: 065
  39. BROMAZEPAM [Suspect]
     Active Substance: BROMAZEPAM
     Dosage: UNK
     Route: 065
  40. BROMAZEPAM [Suspect]
     Active Substance: BROMAZEPAM
     Dosage: UNK
     Route: 065
  41. BROMAZEPAM [Suspect]
     Active Substance: BROMAZEPAM
     Dosage: UNK
     Route: 065
  42. CHLORMADINONE ACETATE [Suspect]
     Active Substance: CHLORMADINONE ACETATE
     Indication: Migraine
     Dosage: 1 DOSAGE FORM, QD, 10MG DAILY, 21 DAYS/MONTH
     Route: 048
     Dates: start: 20011105, end: 200211
  43. CHLORMADINONE ACETATE [Suspect]
     Active Substance: CHLORMADINONE ACETATE
     Indication: Ovarian cyst
     Dosage: UNK
     Route: 065
     Dates: start: 20160226, end: 2017
  44. CHLORMADINONE ACETATE [Suspect]
     Active Substance: CHLORMADINONE ACETATE
     Dosage: UNK
     Route: 065
     Dates: start: 2017, end: 2019
  45. CHLORMADINONE ACETATE [Suspect]
     Active Substance: CHLORMADINONE ACETATE
     Dosage: UNK
     Route: 065
     Dates: start: 20190226
  46. CHLORMADINONE ACETATE [Suspect]
     Active Substance: CHLORMADINONE ACETATE
     Dosage: UNK
     Route: 065
     Dates: start: 2019
  47. NOMEGESTROL ACETATE [Suspect]
     Active Substance: NOMEGESTROL ACETATE
     Indication: Haemorrhage
     Dosage: 1 DF, QD
     Route: 048
     Dates: start: 200111, end: 200211
  48. NOMEGESTROL ACETATE [Suspect]
     Active Substance: NOMEGESTROL ACETATE
     Indication: Oral contraception
     Dosage: UNK
     Route: 065
     Dates: start: 2002, end: 2011
  49. NOMEGESTROL ACETATE [Suspect]
     Active Substance: NOMEGESTROL ACETATE
     Indication: Ovarian cyst
     Dosage: 1 DF, DAILY
     Route: 048
     Dates: start: 20021113, end: 201103
  50. NOMEGESTROL ACETATE [Suspect]
     Active Substance: NOMEGESTROL ACETATE
     Indication: Migraine
     Dosage: UNK
     Route: 065
     Dates: start: 20031112, end: 2011
  51. NOMEGESTROL ACETATE [Suspect]
     Active Substance: NOMEGESTROL ACETATE
     Indication: Intermenstrual bleeding
     Dosage: UNK
     Dates: start: 20040330
  52. NOMEGESTROL ACETATE [Suspect]
     Active Substance: NOMEGESTROL ACETATE
     Indication: Contraception
     Dosage: UNK (LUTENYL CONTINUOUSLY)
     Dates: start: 20040923
  53. NOMEGESTROL ACETATE [Suspect]
     Active Substance: NOMEGESTROL ACETATE
     Dosage: UNK (RENEWAL LUTENYL)
     Dates: start: 20050420
  54. NOMEGESTROL ACETATE [Suspect]
     Active Substance: NOMEGESTROL ACETATE
     Dosage: UNK (LUTENYL CONTINUOUSLY)
     Dates: start: 20051025
  55. NOMEGESTROL ACETATE [Suspect]
     Active Substance: NOMEGESTROL ACETATE
     Dosage: UNK (LUTENYL CONTINUOUSLY)
     Dates: start: 20061027, end: 2011
  56. NOMEGESTROL ACETATE [Suspect]
     Active Substance: NOMEGESTROL ACETATE
     Dosage: UNK (LUTENYL CONTINUOUSLY)
     Dates: start: 20070503
  57. NOMEGESTROL ACETATE [Suspect]
     Active Substance: NOMEGESTROL ACETATE
     Dosage: UNK (LUTENYL CONTINUOUSLY)
     Dates: start: 20071010
  58. NOMEGESTROL ACETATE [Suspect]
     Active Substance: NOMEGESTROL ACETATE
     Dosage: UNK (LUTENYL CONTINUOUSLY)
     Dates: start: 20080408
  59. NOMEGESTROL ACETATE [Suspect]
     Active Substance: NOMEGESTROL ACETATE
     Dosage: UNK (RENEWAL LUTENYL)
     Dates: start: 20080429
  60. NOMEGESTROL ACETATE [Suspect]
     Active Substance: NOMEGESTROL ACETATE
     Dosage: UNK (LUTENYL CONTINUOUSLY)
     Dates: start: 20091116
  61. NOMEGESTROL ACETATE [Suspect]
     Active Substance: NOMEGESTROL ACETATE
     Dosage: UNK (LUTENYL CONTINUOUSLY)
     Dates: start: 20100206
  62. NOMEGESTROL ACETATE [Suspect]
     Active Substance: NOMEGESTROL ACETATE
     Dosage: UNK
     Dates: start: 201103
  63. NOMEGESTROL ACETATE [Suspect]
     Active Substance: NOMEGESTROL ACETATE
     Dosage: UNK
     Dates: start: 20110316
  64. NOMEGESTROL ACETATE [Suspect]
     Active Substance: NOMEGESTROL ACETATE
     Dosage: UNK
     Route: 065
     Dates: start: 201103
  65. NOMEGESTROL ACETATE [Suspect]
     Active Substance: NOMEGESTROL ACETATE
     Dosage: UNK
     Route: 065
     Dates: start: 20030430
  66. NOMEGESTROL ACETATE [Suspect]
     Active Substance: NOMEGESTROL ACETATE
     Dosage: 10 MG
     Route: 065
     Dates: start: 20020404
  67. NOMEGESTROL ACETATE [Suspect]
     Active Substance: NOMEGESTROL ACETATE
     Dosage: UNK
     Route: 065
     Dates: start: 200211, end: 200403
  68. NOMEGESTROL ACETATE [Suspect]
     Active Substance: NOMEGESTROL ACETATE
     Dosage: 10 MG
     Route: 065
     Dates: start: 20011105, end: 2002
  69. NOMEGESTROL ACETATE [Suspect]
     Active Substance: NOMEGESTROL ACETATE
     Dosage: 10 MG
     Route: 065
     Dates: start: 20190226
  70. ASPIRIN LYSINE\METOCLOPRAMIDE HYDROCHLORIDE [Suspect]
     Active Substance: ASPIRIN LYSINE\METOCLOPRAMIDE HYDROCHLORIDE
     Indication: Headache
     Dosage: UNK
     Route: 065
  71. ASPIRIN LYSINE\METOCLOPRAMIDE HYDROCHLORIDE [Suspect]
     Active Substance: ASPIRIN LYSINE\METOCLOPRAMIDE HYDROCHLORIDE
     Dosage: UNK
     Route: 065
  72. ESCITALOPRAM OXALATE [Suspect]
     Active Substance: ESCITALOPRAM OXALATE
     Dosage: 15 MILLIGRAM
     Route: 065
  73. ESCITALOPRAM OXALATE [Suspect]
     Active Substance: ESCITALOPRAM OXALATE
     Dosage: UNK
     Route: 065
  74. ESCITALOPRAM OXALATE [Suspect]
     Active Substance: ESCITALOPRAM OXALATE
     Dosage: 15 MG
     Route: 065
  75. ESCITALOPRAM OXALATE [Suspect]
     Active Substance: ESCITALOPRAM OXALATE
     Dosage: 15 MG
     Route: 065
  76. ESCITALOPRAM OXALATE [Suspect]
     Active Substance: ESCITALOPRAM OXALATE
     Dosage: UNK
     Route: 065
  77. SINGULAIR [Suspect]
     Active Substance: MONTELUKAST SODIUM
     Dosage: UNK
     Route: 065
     Dates: start: 20110516
  78. SINGULAIR [Suspect]
     Active Substance: MONTELUKAST SODIUM
     Dosage: UNK
     Route: 065
  79. ALBUTEROL SULFATE [Suspect]
     Active Substance: ALBUTEROL SULFATE
     Indication: Asthma
     Dosage: UNK
     Route: 065
  80. ALBUTEROL SULFATE [Suspect]
     Active Substance: ALBUTEROL SULFATE
     Dosage: UNK
     Route: 065
  81. BROMAZEPAM [Suspect]
     Active Substance: BROMAZEPAM
     Dosage: UNK
     Route: 065
  82. ALBUTEROL [Suspect]
     Active Substance: ALBUTEROL
     Indication: Asthma
     Dosage: UNK
     Route: 065
  83. NOMEGESTROL [Suspect]
     Active Substance: NOMEGESTROL
     Dosage: UNK
     Route: 065
  84. CYPROTERONE [Suspect]
     Active Substance: CYPROTERONE
     Dosage: UNK
     Route: 065
  85. CHLORMADINONE [Suspect]
     Active Substance: CHLORMADINONE
     Dosage: UNK
     Route: 065
  86. OXETORONE [Suspect]
     Active Substance: OXETORONE
     Indication: Headache
     Dosage: UNK
     Route: 065
  87. OXETORONE [Suspect]
     Active Substance: OXETORONE
     Dosage: UNK
     Route: 065
  88. OXETORONE [Suspect]
     Active Substance: OXETORONE
     Dosage: UNK
     Route: 065
  89. OXETORONE [Suspect]
     Active Substance: OXETORONE
     Dosage: UNK
     Route: 065
  90. OXETORONE [Suspect]
     Active Substance: OXETORONE
     Dosage: UNK
     Route: 065
  91. OXETORONE [Suspect]
     Active Substance: OXETORONE
     Dosage: UNK
     Route: 065
  92. TIANEPTINE [Concomitant]
     Active Substance: TIANEPTINE
     Indication: Headache
     Dosage: 1 DOSAGE FORM, QD (1 TABLET PER DAY)
     Route: 048
     Dates: start: 20061027
  93. TIANEPTINE [Concomitant]
     Active Substance: TIANEPTINE
     Dosage: 2 DOSAGE FORM
     Route: 048
     Dates: start: 20100608
  94. KETOPROFEN [Concomitant]
     Active Substance: KETOPROFEN
     Dosage: 2 DOSAGE FORM, QD (2 CAPSULES PER DAY)
     Route: 065
     Dates: start: 20050420
  95. PROMESTRIENE [Concomitant]
     Active Substance: PROMESTRIENE
     Dosage: UNK
     Route: 067
     Dates: start: 20090429
  96. PROMESTRIENE [Concomitant]
     Active Substance: PROMESTRIENE
     Dosage: UNK
     Route: 067
     Dates: start: 20091116
  97. PROMESTRIENE [Concomitant]
     Active Substance: PROMESTRIENE
     Dosage: 1 DOSAGE FORM
     Route: 067
     Dates: start: 20090429
  98. PROMESTRIENE [Concomitant]
     Active Substance: PROMESTRIENE
     Dosage: 1 DOSAGE FORM
     Route: 067
     Dates: start: 20091116
  99. PAROXETINE HYDROCHLORIDE [Concomitant]
     Active Substance: PAROXETINE HYDROCHLORIDE
     Dosage: UNK
     Route: 065
     Dates: start: 20051025
  100. DOLIPRANE [Concomitant]
     Active Substance: ACETAMINOPHEN
     Dosage: UNK
     Route: 065
  101. TOPIRAMATE [Concomitant]
     Active Substance: TOPIRAMATE
     Indication: Headache
     Dosage: UNK
     Route: 065
     Dates: start: 20100608
  102. TOPIRAMATE [Concomitant]
     Active Substance: TOPIRAMATE
     Dosage: UNK
     Route: 065
     Dates: start: 20110516
  103. ESTRADIOL [Concomitant]
     Active Substance: ESTRADIOL
     Indication: Hair growth abnormal
     Dosage: 2 DOSAGE FORM (GEL 2 P)
     Route: 065
     Dates: start: 20150617
  104. ESTRADIOL [Concomitant]
     Active Substance: ESTRADIOL
     Indication: Dysmenorrhoea
     Dosage: 1 GEL PRESSURE
     Route: 065
     Dates: start: 20130514
  105. ESTRADIOL [Concomitant]
     Active Substance: ESTRADIOL
     Indication: Hair disorder
     Dosage: 1 DOSAGE FORM, 1 GEL PRESSURE
     Route: 065
     Dates: start: 20131127
  106. ESTRADIOL [Concomitant]
     Active Substance: ESTRADIOL
     Dosage: UNK
     Route: 065
  107. ESTRADIOL [Concomitant]
     Active Substance: ESTRADIOL
     Dosage: UNK
     Route: 065
  108. ESTRADIOL [Concomitant]
     Active Substance: ESTRADIOL
     Dosage: UNK
     Route: 065
  109. PRAZEPAM [Concomitant]
     Active Substance: PRAZEPAM
     Dosage: TREATMENT WITH DEROXAT LYSANXIA LUTENYL
     Route: 065
     Dates: start: 20051025
  110. PRAZEPAM [Concomitant]
     Active Substance: PRAZEPAM
     Dosage: 0.5 DOSAGE FORM (1/2 TABLET)
     Route: 065
     Dates: start: 20060502
  111. PRAZEPAM [Concomitant]
     Active Substance: PRAZEPAM
     Dosage: 1.5 DF, QD TREATMENT WITH DEROXAT LYSANXIA LUTENYL
     Route: 065
     Dates: start: 20090429
  112. PRAZEPAM [Concomitant]
     Active Substance: PRAZEPAM
     Dosage: TREATMENT WITH DEROXAT AND LYSANXIA. LUTENYL
     Route: 065
     Dates: start: 20060502
  113. PULMICORT TURBUHALER [Concomitant]
     Active Substance: BUDESONIDE
     Dosage: UNK
     Route: 065
     Dates: start: 20110516
  114. DIHYDROERGOTAMINE MESYLATE [Concomitant]
     Active Substance: DIHYDROERGOTAMINE MESYLATE
     Dosage: COMMENT WHEN LUTENYL WAS RENEWED
     Route: 065
     Dates: start: 20050420
  115. FLUNARIZINE HYDROCHLORIDE [Concomitant]
     Active Substance: FLUNARIZINE HYDROCHLORIDE
     Dosage: UNK
     Route: 065
  116. DIANE (CYPROTERONE ACETATE\ETHINYL ESTRADIOL) [Concomitant]
     Active Substance: CYPROTERONE ACETATE\ETHINYL ESTRADIOL
     Indication: Migraine
     Dosage: UNK
     Route: 065
     Dates: start: 1999, end: 2001
  117. DIANE (CYPROTERONE ACETATE\ETHINYL ESTRADIOL) [Concomitant]
     Active Substance: CYPROTERONE ACETATE\ETHINYL ESTRADIOL
     Indication: Haemorrhage
     Dosage: UNK
     Route: 065
     Dates: start: 200006
  118. DIANE (CYPROTERONE ACETATE\ETHINYL ESTRADIOL) [Concomitant]
     Active Substance: CYPROTERONE ACETATE\ETHINYL ESTRADIOL
     Dosage: UNK
     Route: 065
     Dates: start: 199905, end: 200011
  119. SINGULAIR [Concomitant]
     Active Substance: MONTELUKAST SODIUM
     Dosage: UNK
     Route: 065
     Dates: start: 20110516
  120. OXETORONE [Concomitant]
     Active Substance: OXETORONE
     Indication: Headache
     Dosage: UNK
     Route: 065
  121. METHYLPREDNISOLONE ACETATE [Concomitant]
     Active Substance: METHYLPREDNISOLONE ACETATE
     Dosage: 4 MILLIGRAM
     Route: 048
     Dates: start: 201602
  122. VENTOLIN [Concomitant]
     Active Substance: ALBUTEROL SULFATE
     Indication: Asthma
     Dosage: UNK
     Route: 065
  123. CHLORMADINONE ACETATE [Concomitant]
     Active Substance: CHLORMADINONE ACETATE
     Indication: Migraine
     Dosage: UNK
     Route: 065
     Dates: start: 20160226
  124. CHLORMADINONE ACETATE [Concomitant]
     Active Substance: CHLORMADINONE ACETATE
     Dosage: UNK
     Route: 065
     Dates: start: 2017, end: 2019
  125. CYPROTERONE ACETATE [Concomitant]
     Active Substance: CYPROTERONE ACETATE
     Indication: Hirsutism
     Dosage: 50 MILLIGRAM, DAILY
     Route: 048
     Dates: start: 201105, end: 201504
  126. CYPROTERONE ACETATE [Concomitant]
     Active Substance: CYPROTERONE ACETATE
     Dosage: 500 MILLIGRAM
     Route: 065
     Dates: start: 201505
  127. CYPROTERONE ACETATE [Concomitant]
     Active Substance: CYPROTERONE ACETATE
     Dosage: 1 GRAM
     Dates: start: 20150617

REACTIONS (97)
  - Meningioma [Not Recovered/Not Resolved]
  - Condition aggravated [Not Recovered/Not Resolved]
  - Exophthalmos [Recovered/Resolved]
  - Headache [Not Recovered/Not Resolved]
  - Arthralgia [Unknown]
  - Hyperaesthesia [Unknown]
  - Eyelid ptosis [Not Recovered/Not Resolved]
  - Tremor [Not Recovered/Not Resolved]
  - Paraesthesia [Not Recovered/Not Resolved]
  - Anisocoria [Not Recovered/Not Resolved]
  - Mydriasis [Not Recovered/Not Resolved]
  - Dizziness [Not Recovered/Not Resolved]
  - Somnolence [Unknown]
  - Amnesia [Not Recovered/Not Resolved]
  - Gait disturbance [Unknown]
  - Asthenia [Not Recovered/Not Resolved]
  - Heterophoria [Recovered/Resolved]
  - Diplopia [Not Recovered/Not Resolved]
  - Hypocalcaemia [Unknown]
  - Photophobia [Unknown]
  - Vertigo [Not Recovered/Not Resolved]
  - Blindness [Not Recovered/Not Resolved]
  - Nervous system disorder [Not Recovered/Not Resolved]
  - Epilepsy [Not Recovered/Not Resolved]
  - Fall [Not Recovered/Not Resolved]
  - Upper limb fracture [Unknown]
  - Radius fracture [Unknown]
  - Back pain [Not Recovered/Not Resolved]
  - Retrograde amnesia [Not Recovered/Not Resolved]
  - Balance disorder [Not Recovered/Not Resolved]
  - Tenderness [Not Recovered/Not Resolved]
  - Hot flush [Not Recovered/Not Resolved]
  - Sleep disorder [Not Recovered/Not Resolved]
  - Occipital neuralgia [Not Recovered/Not Resolved]
  - Eye movement disorder [Not Recovered/Not Resolved]
  - Communication disorder [Not Recovered/Not Resolved]
  - Migraine with aura [Not Recovered/Not Resolved]
  - Eye injury [Not Recovered/Not Resolved]
  - Malaise [Not Recovered/Not Resolved]
  - Cognitive disorder [Not Recovered/Not Resolved]
  - Migraine without aura [Not Recovered/Not Resolved]
  - Cluster headache [Not Recovered/Not Resolved]
  - General physical condition abnormal [Not Recovered/Not Resolved]
  - Intermenstrual bleeding [Not Recovered/Not Resolved]
  - Apathy [Not Recovered/Not Resolved]
  - Depression [Not Recovered/Not Resolved]
  - Eye pain [Not Recovered/Not Resolved]
  - Coordination abnormal [Not Recovered/Not Resolved]
  - Impaired work ability [Recovered/Resolved]
  - Ligament sprain [Unknown]
  - Neck pain [Not Recovered/Not Resolved]
  - Asthenopia [Not Recovered/Not Resolved]
  - Photophobia [Not Recovered/Not Resolved]
  - Condition aggravated [Recovered/Resolved]
  - Overdose [Unknown]
  - Hyperhidrosis [Unknown]
  - Blepharospasm [Unknown]
  - Weight increased [Unknown]
  - Tachycardia [Unknown]
  - Phonophobia [Unknown]
  - General physical health deterioration [Not Recovered/Not Resolved]
  - Hypoaesthesia eye [Recovered/Resolved]
  - Disability [Unknown]
  - Asthenia [Unknown]
  - Diplopia [Unknown]
  - Discomfort [Not Recovered/Not Resolved]
  - Epilepsy [Not Recovered/Not Resolved]
  - Fatigue [Not Recovered/Not Resolved]
  - Visual field defect [Not Recovered/Not Resolved]
  - Ill-defined disorder [Unknown]
  - Menometrorrhagia [Unknown]
  - Muscle twitching [Unknown]
  - Nausea [Unknown]
  - Impaired quality of life [Not Recovered/Not Resolved]
  - Crying [Unknown]
  - Facial pain [Unknown]
  - Clumsiness [Not Recovered/Not Resolved]
  - Limb discomfort [Unknown]
  - Hypertrichosis [Unknown]
  - Night sweats [Unknown]
  - Hyperhidrosis [Unknown]
  - Pain [Unknown]
  - Dyscalculia [Unknown]
  - Visual impairment [Unknown]
  - Amenorrhoea [Unknown]
  - Withdrawal syndrome [Unknown]
  - Migraine [Unknown]
  - Fibroadenoma of breast [Unknown]
  - Vulvovaginal dryness [Unknown]
  - Menopausal symptoms [Unknown]
  - Vision blurred [Unknown]
  - Urinary incontinence [Unknown]
  - Myopia [Unknown]
  - Ovarian cyst [Unknown]
  - Headache [Unknown]
  - Heavy menstrual bleeding [Recovered/Resolved]
  - Off label use [Unknown]

NARRATIVE: CASE EVENT DATE: 20001101
